FAERS Safety Report 5522128-5 (Version None)
Quarter: 2007Q4

REPORT INFORMATION
  Report Type: 
  Country: None (occurrence: None)
  Receive Date: 20071120
  Receipt Date: 20071114
  Transmission Date: 20080405
  Serious: Yes (Hospitalization, Other)
  Sender: FDA-Public Use
  Company Number: US-MERCK-0707USA03799

PATIENT
  Age: 29 Year
  Sex: Female
  Weight: 57 kg

DRUGS (6)
  1. FOSAMAX [Suspect]
     Indication: OSTEOPOROSIS
     Route: 048
     Dates: start: 19960101, end: 20060101
  2. FOSAMAX [Suspect]
     Route: 048
     Dates: start: 19971211
  3. FOSAMAX [Suspect]
     Route: 048
     Dates: start: 20020717
  4. ESTRADIOL [Concomitant]
     Route: 065
     Dates: start: 19990101
  5. ACTONEL [Concomitant]
     Indication: OSTEOPOROSIS
     Route: 065
     Dates: start: 20050901
  6. BONIVA [Concomitant]
     Indication: OSTEOPOROSIS
     Route: 065
     Dates: start: 20060123

REACTIONS (30)
  - ABDOMINAL PAIN [None]
  - ACCIDENTAL OVERDOSE [None]
  - BACK PAIN [None]
  - BLINDNESS [None]
  - BREAST CYST [None]
  - BREAST MASS [None]
  - BRONCHITIS [None]
  - DEPRESSION [None]
  - DYSPLASTIC NAEVUS SYNDROME [None]
  - EAR DISORDER [None]
  - FUNGAL INFECTION [None]
  - HAEMATURIA [None]
  - HYPOAESTHESIA [None]
  - LIMB DISCOMFORT [None]
  - MENOPAUSAL SYMPTOMS [None]
  - MUSCLE SPASMS [None]
  - NAUSEA [None]
  - OSTEONECROSIS [None]
  - OTITIS MEDIA [None]
  - OVARIAN CYST [None]
  - PANCREATITIS [None]
  - PARAESTHESIA [None]
  - PHARYNGITIS [None]
  - RESORPTION BONE INCREASED [None]
  - ROTATOR CUFF SYNDROME [None]
  - SINUSITIS [None]
  - TENDONITIS [None]
  - URINARY TRACT INFECTION [None]
  - VAGINITIS BACTERIAL [None]
  - VOMITING [None]
